FAERS Safety Report 24753873 (Version 3)
Quarter: 2025Q1

REPORT INFORMATION
  Report Type: Spontaneous
  Country: NO (occurrence: NO)
  Receive Date: 20241219
  Receipt Date: 20250122
  Transmission Date: 20250409
  Serious: Yes (Other)
  Sender: BAYER HEALTHCARE PHARMACEUTICALS INC.
  Company Number: NO-BAYER-2024A177737

PATIENT
  Age: 69 Year
  Sex: Male

DRUGS (3)
  1. NUBEQA [Suspect]
     Active Substance: DAROLUTAMIDE
     Indication: Prostate cancer metastatic
     Dosage: 300 MG, BID
     Dates: start: 20240205
  2. NUBEQA [Suspect]
     Active Substance: DAROLUTAMIDE
     Indication: Prostate cancer metastatic
     Dosage: 300 MG, TID
     Dates: start: 20250102
  3. COZAAR [Concomitant]
     Active Substance: LOSARTAN POTASSIUM

REACTIONS (6)
  - Dialysis [None]
  - Blood creatinine increased [None]
  - Haemoglobin decreased [None]
  - Blood iron decreased [None]
  - Prostatic specific antigen increased [None]
  - Product use issue [None]

NARRATIVE: CASE EVENT DATE: 20240205
